FAERS Safety Report 18854017 (Version 2)
Quarter: 2021Q1

REPORT INFORMATION
  Report Type: Spontaneous
  Country: LU (occurrence: LU)
  Receive Date: 20210205
  Receipt Date: 20210211
  Transmission Date: 20210420
  Serious: Yes (Death)
  Sender: FDA-Public Use
  Company Number: LU-SA-2021SA035038

PATIENT
  Age: 63 Year
  Sex: Male
  Weight: 90 kg

DRUGS (6)
  1. ELOXATIN [Suspect]
     Active Substance: OXALIPLATIN
     Dosage: 167.2 MG, QCY
     Route: 041
     Dates: start: 20210106, end: 20210106
  2. CALCIUM FOLINATE [Suspect]
     Active Substance: LEUCOVORIN CALCIUM
     Indication: RECTAL ADENOCARCINOMA
     Dosage: 836.2 MG, QCY  FROM 7:46 OR 7:47 AM
     Route: 041
     Dates: start: 20210106, end: 20210106
  3. ELOXATIN [Suspect]
     Active Substance: OXALIPLATIN
     Indication: RECTAL ADENOCARCINOMA
     Dosage: FROM 7:46 AM
     Route: 041
     Dates: start: 20210106, end: 20210106
  4. ONDANSETRON HYDROCHLORIDE. [Suspect]
     Active Substance: ONDANSETRON HYDROCHLORIDE
     Indication: PREMEDICATION
     Dosage: 8 MG, TOTAL FROM 07:16 TO 7:43 AM
     Route: 041
     Dates: start: 20210106, end: 20210106
  5. DEXAMETHASONE. [Suspect]
     Active Substance: DEXAMETHASONE
     Indication: PREMEDICATION
     Dosage: 8 MG, TOTAL FROM 6:46 TO 7:16 AM
     Route: 041
     Dates: start: 20210106, end: 20210106
  6. CALCIUM FOLINATE [Suspect]
     Active Substance: LEUCOVORIN CALCIUM
     Dosage: 836.2 MG, QCY  FROM 7:46 OR 7:47 AM
     Route: 041
     Dates: start: 20210106, end: 20210106

REACTIONS (2)
  - Anaphylactic shock [Fatal]
  - Cardiac arrest [Fatal]

NARRATIVE: CASE EVENT DATE: 20210106
